FAERS Safety Report 6713622-X (Version None)
Quarter: 2010Q2

REPORT INFORMATION
  Report Type: 
  Country: None (occurrence: None)
  Receive Date: 20100506
  Receipt Date: 20100504
  Transmission Date: 20101027
  Serious: Yes (Congenital Anomaly, Other)
  Sender: FDA-Public Use
  Company Number: A0857761A

PATIENT

DRUGS (5)
  1. COMBIVIR [Suspect]
     Indication: HIV INFECTION
  2. EPZICOM [Suspect]
     Indication: HIV INFECTION
  3. KALETRA [Suspect]
     Indication: HIV INFECTION
  4. VIRAMUNE [Suspect]
     Indication: HIV INFECTION
  5. SUSTIVA [Suspect]
     Indication: HIV INFECTION

REACTIONS (2)
  - CONGENITAL DIAPHRAGMATIC ANOMALY [None]
  - DRUG EXPOSURE DURING PREGNANCY [None]
